FAERS Safety Report 21022702 (Version 1)
Quarter: 2022Q2

REPORT INFORMATION
  Report Type: Report from Study
  Country: US (occurrence: US)
  Receive Date: 20220629
  Receipt Date: 20220629
  Transmission Date: 20220721
  Serious: Yes (Other)
  Sender: FDA-Public Use
  Company Number: US-KOREA IPSEN Pharma-2022-18387

PATIENT
  Age: 60 Year
  Sex: Female

DRUGS (1)
  1. SOMATULINE DEPOT [Suspect]
     Active Substance: LANREOTIDE ACETATE
     Indication: Carcinoid tumour of the small bowel
     Dosage: STRENGTH: 120MG/0.5 ML
     Route: 058

REACTIONS (7)
  - Impaired gastric emptying [Recovering/Resolving]
  - Malabsorption [Recovering/Resolving]
  - Sciatic nerve injury [Recovered/Resolved]
  - Blood calcium decreased [Recovering/Resolving]
  - Blood magnesium decreased [Recovering/Resolving]
  - Depression [Recovering/Resolving]
  - Wrong technique in product usage process [Unknown]
